FAERS Safety Report 10561488 (Version 1)
Quarter: 2014Q4

REPORT INFORMATION
  Report Type: Spontaneous
  Country: US (occurrence: US)
  Receive Date: 20141103
  Receipt Date: 20141103
  Transmission Date: 20150529
  Serious: No
  Sender: FDA-Public Use
  Company Number: US-ENDO PHARMACEUTICALS INC.-APIR20140004

PATIENT
  Sex: Female

DRUGS (1)
  1. ALPRAZOLAM IR TABLETS 0.5MG [Suspect]
     Active Substance: ALPRAZOLAM
     Indication: GENERALISED ANXIETY DISORDER
     Route: 048
     Dates: start: 201312

REACTIONS (1)
  - Abdominal pain upper [Unknown]
